FAERS Safety Report 9301714 (Version 1)
Quarter: 2012Q4

REPORT INFORMATION
  Report Type: Spontaneous
  Country: US (occurrence: None)
  Receive Date: 20121109
  Receipt Date: 20121109
  Transmission Date: 20130627
  Serious: Yes (Other)
  Sender: FDA-Public Use
  Company Number: 2012S1000054

PATIENT
  Age: 70 Year
  Sex: Male

DRUGS (4)
  1. CUBICIN [Suspect]
     Indication: STAPHYLOCOCCAL INFECTION
     Route: 042
     Dates: start: 20111214, end: 20120103
  2. HYDROCODONE [Concomitant]
  3. FLEXERIL [Concomitant]
  4. ALL OTHER THERAPEUTIC PRODUCT [Concomitant]

REACTIONS (9)
  - Extradural abscess [None]
  - Intervertebral discitis [None]
  - Osteomyelitis [None]
  - Arthralgia [None]
  - Joint effusion [None]
  - Atelectasis [None]
  - Hepatic steatosis [None]
  - Microbiology test abnormal [None]
  - Treatment failure [None]
